FAERS Safety Report 7547112-1 (Version None)
Quarter: 2011Q2

REPORT INFORMATION
  Report Type: 
  Country: None (occurrence: None)
  Receive Date: 20110614
  Receipt Date: 20110607
  Transmission Date: 20111010
  Serious: Yes (Death, Hospitalization, Other)
  Sender: FDA-Public Use
  Company Number: IL-CELGENEUS-082-50794-11061174

PATIENT

DRUGS (2)
  1. VIDAZA [Suspect]
     Route: 065
  2. VIDAZA [Suspect]

REACTIONS (6)
  - MYELODYSPLASTIC SYNDROME TRANSFORMATION [None]
  - LEUKAEMIA RECURRENT [None]
  - NEUTROPENIA [None]
  - THROMBOCYTOPENIA [None]
  - INFECTION [None]
  - PYREXIA [None]
